FAERS Safety Report 25042123 (Version 1)
Quarter: 2025Q1

REPORT INFORMATION
  Report Type: Spontaneous
  Country: JP (occurrence: JP)
  Receive Date: 20250305
  Receipt Date: 20250305
  Transmission Date: 20250408
  Serious: Yes (Other)
  Sender: UCB
  Company Number: JP-UCBJ-CD202502710UCBPHAPROD

PATIENT
  Age: 15 Year
  Sex: Male

DRUGS (4)
  1. FINTEPLA [Suspect]
     Active Substance: FENFLURAMINE
     Indication: Lennox-Gastaut syndrome
     Dosage: 6.4 MILLILITER, ONCE DAILY (QD)
     Route: 048
  2. LEVETIRACETAM [Concomitant]
     Active Substance: LEVETIRACETAM
     Indication: Lennox-Gastaut syndrome
     Route: 048
  3. TEGRETOL [Concomitant]
     Active Substance: CARBAMAZEPINE
     Indication: Lennox-Gastaut syndrome
     Route: 048
  4. DIAZEPAM [Concomitant]
     Active Substance: DIAZEPAM
     Indication: Lennox-Gastaut syndrome

REACTIONS (3)
  - Femur fracture [Recovering/Resolving]
  - Epilepsy [Unknown]
  - Fall [Unknown]
